FAERS Safety Report 10633793 (Version 1)
Quarter: 2014Q4

REPORT INFORMATION
  Report Type: Spontaneous
  Country: CN (occurrence: CN)
  Receive Date: 20141205
  Receipt Date: 20141205
  Transmission Date: 20150529
  Serious: Yes (Other)
  Sender: FDA-Public Use
  Company Number: CN-BAYER-2014-177298

PATIENT
  Sex: Male

DRUGS (2)
  1. SORAFENIB (RAF KINASE INHIBITOR) [Suspect]
     Active Substance: SORAFENIB
     Indication: METASTATIC RENAL CELL CARCINOMA
     Dosage: 600 MG, BID
     Dates: start: 201101, end: 201102
  2. SORAFENIB (RAF KINASE INHIBITOR) [Suspect]
     Active Substance: SORAFENIB
     Indication: METASTATIC RENAL CELL CARCINOMA
     Dosage: 400 MG, BID
     Dates: start: 200701, end: 201101

REACTIONS (7)
  - Diarrhoea [None]
  - Vena cava embolism [Not Recovered/Not Resolved]
  - Stomatitis [None]
  - Fatigue [None]
  - Diarrhoea [None]
  - Metastatic renal cell carcinoma [Not Recovered/Not Resolved]
  - Palmar-plantar erythrodysaesthesia syndrome [None]

NARRATIVE: CASE EVENT DATE: 200701
